FAERS Safety Report 9086407 (Version 1)
Quarter: 2013Q1

REPORT INFORMATION
  Report Type: Spontaneous
  Country: PL (occurrence: PL)
  Receive Date: 20130131
  Receipt Date: 20130131
  Transmission Date: 20140127
  Serious: Yes (Other)
  Sender: FDA-Public Use
  Company Number: PL-BAXTER-2013BAX003520

PATIENT
  Age: 36 Year
  Sex: Male

DRUGS (3)
  1. FEIBA NF [Suspect]
     Indication: PRODUCT USED FOR UNKNOWN INDICATION
     Route: 042
  2. FEIBA NF [Suspect]
     Route: 042
  3. FEIBA NF [Suspect]
     Route: 042

REACTIONS (1)
  - Factor VIII inhibition [Recovering/Resolving]
